FAERS Safety Report 16262203 (Version 2)
Quarter: 2019Q2

REPORT INFORMATION
  Report Type: Report from Study
  Country: NL (occurrence: NL)
  Receive Date: 20190501
  Receipt Date: 20190503
  Transmission Date: 20190711
  Serious: Yes (Hospitalization)
  Sender: FDA-Public Use
  Company Number: NL-SEATTLE GENETICS-2019SGN01330

PATIENT
  Age: 61 Year
  Sex: Male

DRUGS (10)
  1. BRENTUXIMAB VEDOTIN-MPI [Suspect]
     Active Substance: BRENTUXIMAB VEDOTIN
     Indication: B-CELL LYMPHOMA
     Dosage: 130 MILLIGRAM
     Route: 065
     Dates: start: 20190215, end: 20190329
  2. DEXAMETHASONE. [Suspect]
     Active Substance: DEXAMETHASONE
     Indication: B-CELL LYMPHOMA
     Dosage: 40 MILLIGRAM, UNK
     Route: 065
     Dates: start: 20190215, end: 20190329
  3. LIPEGFILGRASTIM [Suspect]
     Active Substance: LIPEGFILGRASTIM
     Indication: B-CELL LYMPHOMA
     Dosage: 6 MILLIGRAM, UNK
     Route: 065
     Dates: start: 20190219, end: 20190403
  4. CISPLATIN. [Suspect]
     Active Substance: CISPLATIN
     Indication: B-CELL LYMPHOMA
     Dosage: 214 MILLIGRAM, UNK
     Route: 065
     Dates: start: 20190216, end: 20190330
  5. DIGOXIN. [Suspect]
     Active Substance: DIGOXIN
     Indication: ATRIAL FIBRILLATION
     Dosage: 1 MILLIGRAM, UNK
     Route: 065
     Dates: start: 20190402, end: 20190403
  6. CYTARABINE. [Suspect]
     Active Substance: CYTARABINE
     Indication: B-CELL LYMPHOMA
     Dosage: 4300 MILLIGRAM, UNK
     Route: 065
     Dates: start: 20190217, end: 20190331
  7. RITUXIMAB. [Suspect]
     Active Substance: RITUXIMAB
     Indication: B-CELL LYMPHOMA
     Dosage: 750 MILLIGRAM, UNK
     Route: 065
     Dates: start: 20190215, end: 20190329
  8. DIGOXIN. [Suspect]
     Active Substance: DIGOXIN
     Dosage: UNK
     Route: 065
     Dates: start: 20190405, end: 20190405
  9. BICNU [Suspect]
     Active Substance: CARMUSTINE
     Indication: B-CELL LYMPHOMA
     Dosage: 6 MILLIGRAM
     Route: 065
     Dates: start: 20190219
  10. METOPROLOL. [Suspect]
     Active Substance: METOPROLOL
     Indication: HYPERTENSION
     Dosage: 100 MILLIGRAM, UNK
     Route: 065
     Dates: end: 20190403

REACTIONS (2)
  - Orthostatic hypotension [Recovered/Resolved]
  - Syncope [Not Recovered/Not Resolved]

NARRATIVE: CASE EVENT DATE: 20190402
